FAERS Safety Report 4663852-6 (Version None)
Quarter: 2005Q2

REPORT INFORMATION
  Report Type: 
  Country: None (occurrence: None)
  Receive Date: 20050516
  Receipt Date: 20050428
  Transmission Date: 20051028
  Serious: Yes (Hospitalization)
  Sender: FDA-Public Use
  Company Number: DSA_26387_2005

PATIENT
  Age: 85 Year
  Sex: Male

DRUGS (2)
  1. DILTIAZEM HCL [Suspect]
     Indication: ANGINA PECTORIS
     Dosage: 200 MG Q DAY PO
     Route: 048
     Dates: start: 20041201, end: 20050412
  2. ARTIST [Concomitant]

REACTIONS (3)
  - ASTHMA [None]
  - HEART RATE DECREASED [None]
  - LABORATORY TEST ABNORMAL [None]
